FAERS Safety Report 8280019-3 (Version None)
Quarter: 2012Q2

REPORT INFORMATION
  Report Type: 
  Country: None (occurrence: None)
  Receive Date: 20120412
  Receipt Date: 20110823
  Transmission Date: 20120825
  Serious: No
  Sender: FDA-Public Use
  Company Number: US-ASTRAZENECA-2010SE39091

PATIENT
  Age: 32 Year
  Sex: Male

DRUGS (14)
  1. NEXIUM [Suspect]
     Route: 048
  2. VITAMIN D3 ORAL [Concomitant]
  3. MIRAPEX [Concomitant]
  4. ZOLOFT [Concomitant]
  5. SEROQUEL [Suspect]
     Route: 048
  6. ALBUTEROL SULFATE [Concomitant]
  7. CELEBREX [Concomitant]
  8. REGLAN [Concomitant]
  9. DIOVAN HCT [Concomitant]
  10. RISPERDAL [Concomitant]
  11. VIAGRA [Concomitant]
  12. SODIUM CHLORIDE NASAL SPRAY [Concomitant]
  13. STRATTERA [Concomitant]
  14. CLARINEX [Concomitant]

REACTIONS (3)
  - PAIN [None]
  - SOMNOLENCE [None]
  - ARTHRALGIA [None]
